FAERS Safety Report 21498548 (Version 1)
Quarter: 2022Q4

REPORT INFORMATION
  Report Type: Spontaneous
  Country: BE (occurrence: BE)
  Receive Date: 20221024
  Receipt Date: 20221024
  Transmission Date: 20230113
  Serious: Yes (Hospitalization)
  Sender: FDA-Public Use
  Company Number: BE-MYLANLABS-2022M1117288

PATIENT
  Age: 53 Year
  Sex: Female

DRUGS (3)
  1. PREGABALIN [Suspect]
     Active Substance: PREGABALIN
     Indication: Trigeminal neuropathy
     Dosage: UNK, BID (DOSAGE: 100MG IN THE MORNING AND 225MG IN THE EVENING)
     Route: 048
  2. PREGABALIN [Suspect]
     Active Substance: PREGABALIN
     Dosage: DOSAGE WAS INITIALLY REDUCED TO 75MG IN THE EVENING AND EVENTUALLY....
     Route: 048
  3. AMITRIPTYLINE [Suspect]
     Active Substance: AMITRIPTYLINE
     Indication: Trigeminal neuropathy
     Dosage: 10 MILLIGRAM, DOSAGE: ADMINISTERED IN THE EVENING
     Route: 048

REACTIONS (1)
  - Treatment failure [Unknown]
